FAERS Safety Report 10048418 (Version 1)
Quarter: 2014Q1

REPORT INFORMATION
  Report Type: Spontaneous
  Country: US (occurrence: US)
  Receive Date: 20140331
  Receipt Date: 20140331
  Transmission Date: 20141002
  Serious: Yes (Hospitalization, Other)
  Sender: FDA-Public Use
  Company Number: US-B.I. PHARMACEUTICALS,INC./RIDGEFIELD-2014-BI-13363BP

PATIENT
  Age: 89 Year
  Sex: Male
  Weight: 68 kg

DRUGS (2)
  1. SPIRIVA [Suspect]
     Indication: CHRONIC OBSTRUCTIVE PULMONARY DISEASE
     Dosage: 18 MCG
     Route: 055
     Dates: start: 2012
  2. TAMSULOSIN [Concomitant]
     Indication: PROSTATOMEGALY
     Route: 048

REACTIONS (2)
  - Head and neck cancer [Not Recovered/Not Resolved]
  - Pneumonia [Not Recovered/Not Resolved]
